FAERS Safety Report 9795688 (Version 1)
Quarter: 2014Q1

REPORT INFORMATION
  Report Type: Spontaneous
  Country: GB (occurrence: GB)
  Receive Date: 20140103
  Receipt Date: 20140103
  Transmission Date: 20141002
  Serious: Yes (Other)
  Sender: FDA-Public Use
  Company Number: GB-MYLANLABS-2013S1028717

PATIENT
  Age: 2 Decade
  Sex: Female

DRUGS (15)
  1. TACROLIMUS [Suspect]
     Indication: LIVER TRANSPLANT
     Route: 048
     Dates: start: 20080702
  2. MYCOPHENOLATE MOFETIL [Suspect]
     Indication: LIVER TRANSPLANT
     Route: 048
     Dates: start: 20080702
  3. VORICONAZOLE [Suspect]
     Indication: ASPERGILLUS INFECTION
     Dates: start: 20130925, end: 201310
  4. VORICONAZOLE [Suspect]
     Indication: ASPERGILLUS INFECTION
     Dates: start: 201310
  5. VORICONAZOLE [Suspect]
     Indication: ASPERGILLUS INFECTION
  6. ACETYLCYSTEINE [Concomitant]
     Indication: PRODUCT USED FOR UNKNOWN INDICATION
  7. VITAMIN E D ALPHA TOCOPHEROL [Concomitant]
     Indication: PRODUCT USED FOR UNKNOWN INDICATION
  8. ASPIRIN [Concomitant]
     Indication: PRODUCT USED FOR UNKNOWN INDICATION
  9. BUDESONIDE W/FORMOTEROL FUMARATE [Concomitant]
     Indication: PRODUCT USED FOR UNKNOWN INDICATION
  10. CETIRIZINE [Concomitant]
     Indication: PRODUCT USED FOR UNKNOWN INDICATION
  11. COLECALCIFEROL [Concomitant]
     Indication: PRODUCT USED FOR UNKNOWN INDICATION
  12. INSULIN HUMAN [Concomitant]
     Indication: PRODUCT USED FOR UNKNOWN INDICATION
  13. PANCREATIN [Concomitant]
     Indication: PRODUCT USED FOR UNKNOWN INDICATION
  14. RETINOL [Concomitant]
     Indication: CYSTIC FIBROSIS
  15. SALBUTAMOL [Concomitant]
     Indication: PRODUCT USED FOR UNKNOWN INDICATION
     Route: 055

REACTIONS (6)
  - Alopecia [Not Recovered/Not Resolved]
  - Renal disorder [Unknown]
  - Lip pain [Recovering/Resolving]
  - Potentiating drug interaction [Unknown]
  - Skin exfoliation [Not Recovered/Not Resolved]
  - Stomatitis [Recovering/Resolving]
